FAERS Safety Report 6488260-7 (Version None)
Quarter: 2009Q4

REPORT INFORMATION
  Report Type: 
  Country: None (occurrence: None)
  Receive Date: 20091123
  Receipt Date: 20091015
  Transmission Date: 20100525
  Serious: No
  Sender: FDA-Public Use
  Company Number: 8053322

PATIENT
  Age: 34 Year
  Sex: Female

DRUGS (6)
  1. CIMZIA [Suspect]
     Indication: CROHN'S DISEASE
     Dosage: 400 MG /M SC
     Route: 058
     Dates: start: 20090923
  2. PAXIL [Concomitant]
  3. XANAX [Concomitant]
  4. AMBIEN [Concomitant]
  5. OXYCONTIN [Concomitant]
  6. MAXALT [Concomitant]

REACTIONS (5)
  - DEPRESSION [None]
  - FEELING HOT [None]
  - INFLUENZA LIKE ILLNESS [None]
  - INJECTION SITE PAIN [None]
  - MIGRAINE [None]
